FAERS Safety Report 8358779 (Version 4)
Quarter: 2014Q2

REPORT INFORMATION
  Report Type: Report from Study
  Country: US (occurrence: US)
  Receive Date: 20120127
  Receipt Date: 20140609
  Transmission Date: 20141212
  Serious: Yes (Life-Threatening, Hospitalization, Other)
  Sender: FDA-Public Use
  Company Number: US-ACTELION-A-US2012-60052

PATIENT
  Age: 27 Year
  Sex: Female

DRUGS (3)
  1. TRACLEER [Suspect]
     Indication: PULMONARY ARTERIAL HYPERTENSION
     Dosage: UNK
     Route: 048
     Dates: start: 20070726
  2. VIAGRA [Concomitant]
  3. COUMADIN [Concomitant]

REACTIONS (6)
  - Thrombosis [Unknown]
  - Coagulopathy [Recovered/Resolved with Sequelae]
  - Injection site infection [Recovered/Resolved with Sequelae]
  - Injection site haemorrhage [Recovered/Resolved with Sequelae]
  - Wheelchair user [Unknown]
  - Arthropathy [Unknown]
